FAERS Safety Report 9034368 (Version 1)
Quarter: 2013Q1

REPORT INFORMATION
  Report Type: Spontaneous
  Country: US (occurrence: None)
  Receive Date: 20130115
  Receipt Date: 20130115
  Transmission Date: 20140127
  Serious: Yes (Disabling, Other)
  Sender: FDA-Public Use
  Company Number: ACO_33675_2013

PATIENT
  Age: 40 Year
  Sex: Male

DRUGS (1)
  1. AMPYRA  (DALFAMPRIDINE)  TABLET [Suspect]
     Indication: ATAXIA
     Dosage: UNK?UNK  TO  10/--/2012
     Dates: end: 201210

REACTIONS (3)
  - Abasia [None]
  - Dizziness [None]
  - Tremor [None]
